FAERS Safety Report 12042356 (Version 8)
Quarter: 2019Q1

REPORT INFORMATION
  Report Type: Report from Study
  Country: US (occurrence: US)
  Receive Date: 20160208
  Receipt Date: 20190313
  Transmission Date: 20190417
  Serious: Yes (Other)
  Sender: FDA-Public Use
  Company Number: US-TAKEDA-2016MPI000600

PATIENT
  Sex: Female
  Weight: 102 kg

DRUGS (23)
  1. FUROSEMIDE. [Concomitant]
     Active Substance: FUROSEMIDE
  2. RANITIDINE. [Concomitant]
     Active Substance: RANITIDINE
  3. MAGNESIUM [Concomitant]
     Active Substance: MAGNESIUM
  4. ATORVASTATIN [Concomitant]
     Active Substance: ATORVASTATIN
  5. METFORMIN [Concomitant]
     Active Substance: METFORMIN HYDROCHLORIDE
     Dosage: UNK
  6. PROCHLORPERAZ [Concomitant]
     Active Substance: PROCHLORPERAZINE MALEATE
  7. VENLAFAXINE [Concomitant]
     Active Substance: VENLAFAXINE HYDROCHLORIDE
  8. IXAZOMIB [Suspect]
     Active Substance: IXAZOMIB
     Indication: PLASMA CELL MYELOMA
     Dosage: 4 MG, QD
     Route: 048
     Dates: start: 201601
  9. ACYCLOVIR                          /00587301/ [Concomitant]
     Active Substance: ACYCLOVIR
  10. BREO ELLIPTA [Concomitant]
     Active Substance: FLUTICASONE FUROATE\VILANTEROL TRIFENATATE
  11. REVLIMID [Suspect]
     Active Substance: LENALIDOMIDE
     Indication: PLASMA CELL MYELOMA
     Dosage: UNK
     Route: 065
     Dates: start: 201601
  12. VITAMIN D3 [Concomitant]
     Active Substance: CHOLECALCIFEROL
     Dosage: UNK
  13. BUPROPION. [Concomitant]
     Active Substance: BUPROPION
  14. IXAZOMIB [Suspect]
     Active Substance: IXAZOMIB
     Dosage: 3 MILLIGRAM, QD
     Route: 048
     Dates: start: 20190116
  15. JANUVIA [Concomitant]
     Active Substance: SITAGLIPTIN PHOSPHATE
  16. METROGEL [Concomitant]
     Active Substance: METRONIDAZOLE
     Dosage: UNK
  17. ENTRESTO [Concomitant]
     Active Substance: SACUBITRIL\VALSARTAN
  18. FISH OIL [Concomitant]
     Active Substance: FISH OIL
     Dosage: UNK
  19. METOPROL XL [Concomitant]
     Dosage: UNK
  20. POTASSIUM CHLORIDE. [Concomitant]
     Active Substance: POTASSIUM CHLORIDE
  21. SPIRONOLACTONE. [Concomitant]
     Active Substance: SPIRONOLACTONE
  22. COMBIVENT [Concomitant]
     Active Substance: ALBUTEROL SULFATE\IPRATROPIUM BROMIDE
  23. ELIQUIS [Concomitant]
     Active Substance: APIXABAN

REACTIONS (13)
  - Off label use [Not Recovered/Not Resolved]
  - Exercise tolerance decreased [Unknown]
  - Dyspnoea exertional [Unknown]
  - Nausea [Unknown]
  - Oedema peripheral [Unknown]
  - Diarrhoea [Unknown]
  - Cough [Unknown]
  - Vomiting [Unknown]
  - Rash [Recovering/Resolving]
  - Diabetes mellitus [Unknown]
  - Fluid retention [Unknown]
  - Fatigue [Unknown]
  - Weight decreased [Unknown]
